FAERS Safety Report 7178476-9 (Version None)
Quarter: 2010Q4

REPORT INFORMATION
  Report Type: 
  Country: None (occurrence: None)
  Receive Date: 20101220
  Receipt Date: 20101213
  Transmission Date: 20110411
  Serious: Yes (Other)
  Sender: FDA-Public Use
  Company Number: NL-AMGEN-NLDSP2010004081

PATIENT

DRUGS (2)
  1. ROMIPLOSTIM [Suspect]
     Indication: IDIOPATHIC THROMBOCYTOPENIC PURPURA
     Dosage: 2 A?G/KG, QWK
     Dates: start: 20100817
  2. ROMIPLOSTIM [Suspect]
     Dosage: 10 A?G/KG, QWK
     Dates: start: 20101111

REACTIONS (4)
  - HAEMORRHAGIC DIATHESIS [None]
  - PLATELET COUNT DECREASED [None]
  - SPLENECTOMY [None]
  - UNEVALUABLE EVENT [None]
